FAERS Safety Report 9342808 (Version 1)
Quarter: 2013Q2

REPORT INFORMATION
  Report Type: Spontaneous
  Country: CN (occurrence: CN)
  Receive Date: 20130611
  Receipt Date: 20130611
  Transmission Date: 20140414
  Serious: Yes (Other)
  Sender: FDA-Public Use
  Company Number: CN-ASTRAZENECA-2013SE41650

PATIENT
  Age: 1827 Day
  Sex: Female

DRUGS (3)
  1. BUDESONIDE [Suspect]
     Indication: BRONCHOPNEUMONIA
     Dosage: 1 MG THREE TIMES A DAY
     Route: 055
     Dates: start: 20121114, end: 20121119
  2. IPRATROPIUM BROMIDE [Concomitant]
     Indication: BRONCHOPNEUMONIA
     Route: 055
     Dates: start: 20121114, end: 20121119
  3. MEZLOCILLLIN SODIUM AND SULBACTAM SODIUM [Concomitant]
     Indication: BRONCHOPNEUMONIA
     Route: 041
     Dates: start: 20121114, end: 20121119

REACTIONS (5)
  - Mental disorder [Unknown]
  - Inappropriate affect [Recovered/Resolved]
  - Tachypnoea [Recovered/Resolved]
  - Irritability [Recovered/Resolved]
  - Agitation [Recovered/Resolved]
